FAERS Safety Report 24777541 (Version 1)
Quarter: 2024Q4

REPORT INFORMATION
  Report Type: Spontaneous
  Country: US (occurrence: US)
  Receive Date: 20241226
  Receipt Date: 20241226
  Transmission Date: 20250115
  Serious: No
  Sender: CELLTRION
  Company Number: US-CELLTRION INC.-2024US017127

PATIENT

DRUGS (9)
  1. TRUXIMA [Suspect]
     Active Substance: RITUXIMAB-ABBS
     Indication: Product used for unknown indication
     Dosage: 1000 MG ON DAY 1
     Dates: start: 20240703
  2. TRUXIMA [Suspect]
     Active Substance: RITUXIMAB-ABBS
     Dosage: 10 MG/ML
  3. CYMBALTA [Concomitant]
     Active Substance: DULOXETINE HYDROCHLORIDE
  4. TYLENOL [Concomitant]
     Active Substance: ACETAMINOPHEN
  5. PREDNISONE [Concomitant]
     Active Substance: PREDNISONE
     Dosage: 5 MG, DAILY
  6. METHOTREXATE [Concomitant]
     Active Substance: METHOTREXATE
  7. FOLIC ACID [Concomitant]
     Active Substance: FOLIC ACID
  8. FERRIC SULFATE [Concomitant]
     Active Substance: FERRIC SULFATE
  9. ADVIL [Concomitant]
     Active Substance: IBUPROFEN

REACTIONS (4)
  - Drug intolerance [Unknown]
  - Mastication disorder [Unknown]
  - Pain in jaw [Unknown]
  - Arthralgia [Unknown]
